FAERS Safety Report 9447989 (Version 2)
Quarter: 2013Q3

REPORT INFORMATION
  Report Type: Spontaneous
  Country: US (occurrence: US)
  Receive Date: 20130808
  Receipt Date: 20130814
  Transmission Date: 20140515
  Serious: Yes (Other)
  Sender: FDA-Public Use
  Company Number: US-NOVOPROD-384452

PATIENT
  Age: 71 Year
  Sex: Female
  Weight: 94.79 kg

DRUGS (1)
  1. VICTOZA [Suspect]
     Indication: TYPE 2 DIABETES MELLITUS
     Dosage: 1.8 MG, QD
     Route: 058
     Dates: start: 201301, end: 20130522

REACTIONS (1)
  - B-cell lymphoma [Not Recovered/Not Resolved]
